FAERS Safety Report 7621447-6 (Version None)
Quarter: 2011Q3

REPORT INFORMATION
  Report Type: 
  Country: None (occurrence: None)
  Receive Date: 20110719
  Receipt Date: 20110518
  Transmission Date: 20111222
  Serious: No
  Sender: FDA-Public Use
  Company Number: US-BAUSCH-2011BL003290

PATIENT
  Age: 69 Year
  Sex: Female

DRUGS (3)
  1. ALLEGRA [Concomitant]
     Indication: HYPERSENSITIVITY
     Route: 048
  2. ZOCOR [Concomitant]
     Indication: BLOOD CHOLESTEROL INCREASED
     Route: 048
  3. LATANOPROST [Suspect]
     Indication: GLAUCOMA
     Route: 047
     Dates: start: 20110427

REACTIONS (2)
  - DRUG INEFFECTIVE [None]
  - INTRAOCULAR PRESSURE INCREASED [None]
